FAERS Safety Report 5624841-8 (Version None)
Quarter: 2008Q1

REPORT INFORMATION
  Report Type: 
  Country: None (occurrence: None)
  Receive Date: 20080213
  Receipt Date: 20080204
  Transmission Date: 20080703
  Serious: Yes (Hospitalization)
  Sender: FDA-Public Use
  Company Number: US-JNJFOC-20080201043

PATIENT
  Sex: Female
  Weight: 52.62 kg

DRUGS (3)
  1. HALDOL [Suspect]
     Indication: EMOTIONAL DISTRESS
  2. SYNTHROID [Concomitant]
     Indication: THYROID DISORDER
  3. NORVASC [Concomitant]
     Indication: HYPERTENSION

REACTIONS (9)
  - ABASIA [None]
  - ADVERSE DRUG REACTION [None]
  - APHASIA [None]
  - APPARENT LIFE THREATENING EVENT [None]
  - MUSCULOSKELETAL STIFFNESS [None]
  - NEUROLEPTIC MALIGNANT SYNDROME [None]
  - PYREXIA [None]
  - SOCIAL AVOIDANT BEHAVIOUR [None]
  - WEIGHT DECREASED [None]
